FAERS Safety Report 8146827-4 (Version None)
Quarter: 2012Q1

REPORT INFORMATION
  Report Type: 
  Country: None (occurrence: None)
  Receive Date: 20120217
  Receipt Date: 20110808
  Transmission Date: 20120608
  Serious: No
  Sender: FDA-Public Use
  Company Number: US-ABBOTT-11P-163-0845463-00

PATIENT
  Sex: Male
  Weight: 104.42 kg

DRUGS (4)
  1. SIMCOR [Suspect]
     Indication: PRODUCT USED FOR UNKNOWN INDICATION
  2. UNKNOWN BLOOD PRESSURE MEDICATION [Concomitant]
  3. UNKNOWN BLOOD PRESSURE MEDICATION [Concomitant]
     Indication: PRODUCT USED FOR UNKNOWN INDICATION
  4. ASPIRIN [Concomitant]
     Indication: PRODUCT USED FOR UNKNOWN INDICATION

REACTIONS (7)
  - PAIN IN EXTREMITY [None]
  - FLUSHING [None]
  - DIABETES MELLITUS [None]
  - GAIT DISTURBANCE [None]
  - RASH [None]
  - ERYTHEMA [None]
  - PALPITATIONS [None]
